FAERS Safety Report 16263541 (Version 2)
Quarter: 2019Q2

REPORT INFORMATION
  Report Type: Spontaneous
  Country: US (occurrence: US)
  Receive Date: 20190502
  Receipt Date: 20190520
  Transmission Date: 20190711
  Serious: No
  Sender: FDA-Public Use
  Company Number: US-ASTRAZENECA-2019SE66696

PATIENT
  Age: 28367 Day
  Sex: Male
  Weight: 92.5 kg

DRUGS (1)
  1. BYDUREON BCISE [Suspect]
     Active Substance: EXENATIDE
     Indication: DIABETES MELLITUS
     Dosage: UNKNOWN
     Route: 065
     Dates: start: 20190425

REACTIONS (4)
  - Injection site pain [Not Recovered/Not Resolved]
  - Product dose omission [Unknown]
  - Skeletal injury [Unknown]
  - Device issue [Unknown]

NARRATIVE: CASE EVENT DATE: 20190425
